FAERS Safety Report 7232718-X (Version None)
Quarter: 2011Q1

REPORT INFORMATION
  Report Type: 
  Country: None (occurrence: None)
  Receive Date: 20110107
  Receipt Date: 20101228
  Transmission Date: 20110831
  Serious: Yes (Other)
  Sender: FDA-Public Use
  Company Number: 8043211

PATIENT
  Sex: Male
  Weight: 3.6 kg

DRUGS (6)
  1. KEPPRA [Suspect]
     Dosage: 30000 MG, DOSE FREQ: DAILY
     Dates: start: 20081115
  2. PRENATAL VITAMINS /01549301/ [Concomitant]
  3. DAILY VITAMINS [Concomitant]
  4. FOLIC ACID [Concomitant]
  5. VALPROIC ACID [Concomitant]
  6. KEPPRA [Suspect]
     Indication: EPILEPSY
     Dosage: 500 MG, DOSE FREQ: DAILY TRANSPLACENTAL
     Route: 064
     Dates: end: 20081115

REACTIONS (2)
  - MATERNAL DRUGS AFFECTING FOETUS [None]
  - HAEMANGIOMA [None]
